FAERS Safety Report 10263841 (Version 1)
Quarter: 2014Q2

REPORT INFORMATION
  Report Type: Other
  Country: GB (occurrence: GB)
  Receive Date: 20140627
  Receipt Date: 20140627
  Transmission Date: 20141212
  Serious: Yes (Disabling)
  Sender: FDA-Public Use
  Company Number: GB-LUPIN PHARMACEUTICALS INC.-E2B_00002195

PATIENT
  Age: 67 Year
  Sex: Female
  Weight: 73.02 kg

DRUGS (2)
  1. SIMVASTATIN [Suspect]
     Indication: HYPERCHOLESTEROLAEMIA
     Route: 048
  2. AMLODIPINE [Concomitant]
     Indication: PRODUCT USED FOR UNKNOWN INDICATION
     Route: 065

REACTIONS (4)
  - Spinal cord disorder [Recovered/Resolved with Sequelae]
  - Hypoaesthesia [Recovering/Resolving]
  - Peripheral coldness [Unknown]
  - Hyperaesthesia [Unknown]
